FAERS Safety Report 19506516 (Version 1)
Quarter: 2021Q3

REPORT INFORMATION
  Report Type: Spontaneous
  Country: US (occurrence: US)
  Receive Date: 20210708
  Receipt Date: 20210708
  Transmission Date: 20211014
  Serious: Yes (Hospitalization)
  Sender: FDA-Public Use
  Company Number: None

PATIENT
  Sex: Female

DRUGS (18)
  1. VITAMIN D3 [Concomitant]
     Active Substance: CHOLECALCIFEROL
  2. FOLIC ACID. [Concomitant]
     Active Substance: FOLIC ACID
  3. PANTOPRAZOLE [Concomitant]
     Active Substance: PANTOPRAZOLE
  4. PRAVASTATIN. [Concomitant]
     Active Substance: PRAVASTATIN
  5. TRIAMCINOLON CRE [Concomitant]
  6. ASPIRIN. [Concomitant]
     Active Substance: ASPIRIN
  7. METHOTREXATE. [Concomitant]
     Active Substance: METHOTREXATE
  8. VITAMIN D [Concomitant]
     Active Substance: VITAMIN D NOS
  9. ENBREL [Suspect]
     Active Substance: ETANERCEPT
     Indication: RHEUMATOID ARTHRITIS
     Dosage: OTHER DOSE:1 PEN;?
     Route: 058
     Dates: start: 20200421
  10. CEPHALEXIN. [Concomitant]
     Active Substance: CEPHALEXIN
  11. LOSARTAN/HCT [Concomitant]
     Active Substance: HYDROCHLOROTHIAZIDE\LOSARTAN POTASSIUM
  12. BENZONATATE. [Concomitant]
     Active Substance: BENZONATATE
  13. CARVEDILOL. [Concomitant]
     Active Substance: CARVEDILOL
  14. IBUPROGEN [Concomitant]
  15. LOSARTAN POT [Concomitant]
     Active Substance: LOSARTAN POTASSIUM
  16. HYDROCHLOROT [Concomitant]
     Active Substance: HYDROCHLOROTHIAZIDE
  17. ASPIRIN 81 [Concomitant]
     Active Substance: ASPIRIN
  18. MELOXICAM. [Concomitant]
     Active Substance: MELOXICAM

REACTIONS (2)
  - Gallbladder operation [None]
  - Therapy interrupted [None]
